FAERS Safety Report 19317717 (Version 1)
Quarter: 2021Q2

REPORT INFORMATION
  Report Type: Spontaneous
  Country: US (occurrence: US)
  Receive Date: 20210527
  Receipt Date: 20210527
  Transmission Date: 20210717
  Serious: Yes (Other)
  Sender: FDA-Public Use
  Company Number: US-PFIZER INC-2021275221

PATIENT
  Age: 64 Year
  Sex: Male

DRUGS (1)
  1. XELJANZ XR [Suspect]
     Active Substance: TOFACITINIB CITRATE
     Dosage: 11 MG

REACTIONS (6)
  - Post procedural complication [Unknown]
  - Confusional state [Unknown]
  - Neoplasm [Unknown]
  - Hypoaesthesia [Unknown]
  - Facial pain [Unknown]
  - Hypoacusis [Unknown]

NARRATIVE: CASE EVENT DATE: 2020
